FAERS Safety Report 4280653-1 (Version None)
Quarter: 2004Q1

REPORT INFORMATION
  Report Type: 
  Country: None (occurrence: None)
  Receive Date: 20040123
  Receipt Date: 20040108
  Transmission Date: 20041129
  Serious: Yes (Hospitalization)
  Sender: FDA-Public Use
  Company Number: CAN-2004-0000105

PATIENT
  Age: 52 Year
  Sex: Male
  Weight: 83.4 kg

DRUGS (1)
  1. MS CONTIN [Suspect]
     Indication: PAIN MANAGEMENT
     Dosage: 30 MG, ORAL
     Route: 048

REACTIONS (10)
  - ASTHENIA [None]
  - DIZZINESS [None]
  - HEART RATE IRREGULAR [None]
  - HYPERHIDROSIS [None]
  - HYPOTENSION [None]
  - LOSS OF CONSCIOUSNESS [None]
  - NAUSEA [None]
  - PULSE ABSENT [None]
  - RESPIRATORY ARREST [None]
  - RESPIRATORY DISORDER [None]
